FAERS Safety Report 25911500 (Version 3)
Quarter: 2025Q4

REPORT INFORMATION
  Report Type: Spontaneous
  Country: US (occurrence: US)
  Receive Date: 20251013
  Receipt Date: 20251031
  Transmission Date: 20260117
  Serious: Yes (Death, Life-Threatening, Hospitalization, Other)
  Sender: GLENMARK
  Company Number: US-MLMSERVICE-20250923-PI655913-00306-1

PATIENT
  Age: 34 Year
  Sex: Female

DRUGS (1)
  1. TACROLIMUS [Suspect]
     Active Substance: TACROLIMUS
     Indication: Immunosuppressant drug therapy
     Dosage: UNK, HIGH DOSE
     Route: 065

REACTIONS (2)
  - Acute kidney injury [Fatal]
  - Circulatory collapse [Fatal]
